FAERS Safety Report 7402746-X (Version None)
Quarter: 2011Q2

REPORT INFORMATION
  Report Type: 
  Country: None (occurrence: None)
  Receive Date: 20110408
  Receipt Date: 20110401
  Transmission Date: 20111010
  Serious: Yes (Hospitalization)
  Sender: FDA-Public Use
  Company Number: NL-MEDIMMUNE-MEDI-0013040

PATIENT
  Sex: Female
  Weight: 4.58 kg

DRUGS (3)
  1. ALBUTEROL SULFATE AUTOHALER [Suspect]
     Dates: start: 20110321, end: 20110322
  2. SYNAGIS [Suspect]
     Route: 030
     Dates: start: 20110107, end: 20110304
  3. SYNAGIS [Suspect]
     Route: 030
     Dates: start: 20110401, end: 20110401

REACTIONS (6)
  - UPPER RESPIRATORY TRACT INFECTION [None]
  - DYSPNOEA [None]
  - DRUG INEFFECTIVE [None]
  - PYREXIA [None]
  - COUGH [None]
  - INCREASED BRONCHIAL SECRETION [None]
